FAERS Safety Report 20991071 (Version 3)
Quarter: 2022Q3

REPORT INFORMATION
  Report Type: Spontaneous
  Country: US (occurrence: US)
  Receive Date: 20220622
  Receipt Date: 20220909
  Transmission Date: 20221026
  Serious: Yes (Other)
  Sender: FDA-Public Use
  Company Number: US-JNJFOC-20220632602

PATIENT
  Sex: Female

DRUGS (6)
  1. ELMIRON [Suspect]
     Active Substance: PENTOSAN POLYSULFATE SODIUM
     Indication: Cystitis interstitial
     Dosage: INTERMITTENT INJECTIONS
     Route: 048
     Dates: start: 2012, end: 2020
  2. HYDROCODONE [Concomitant]
     Active Substance: HYDROCODONE
     Indication: Cystitis interstitial
     Route: 065
     Dates: start: 2012
  3. HYDROXYZINE [Concomitant]
     Active Substance: HYDROXYZINE HYDROCHLORIDE
     Indication: Cystitis interstitial
     Route: 065
     Dates: start: 2012
  4. ZOFRAN [Concomitant]
     Active Substance: ONDANSETRON HYDROCHLORIDE
     Indication: Nausea
     Route: 065
     Dates: start: 2014
  5. KLONOPIN [Concomitant]
     Active Substance: CLONAZEPAM
     Indication: Cystitis interstitial
     Route: 065
     Dates: start: 2012, end: 2014
  6. KLONOPIN [Concomitant]
     Active Substance: CLONAZEPAM
     Route: 065
     Dates: end: 2015

REACTIONS (3)
  - Visual impairment [Unknown]
  - Anxiety [Not Recovered/Not Resolved]
  - Depression [Not Recovered/Not Resolved]

NARRATIVE: CASE EVENT DATE: 20120101
